FAERS Safety Report 4572406-1 (Version None)
Quarter: 2005Q1

REPORT INFORMATION
  Report Type: 
  Country: None (occurrence: None)
  Receive Date: 20050207
  Receipt Date: 20050125
  Transmission Date: 20050727
  Serious: Yes (Other)
  Sender: FDA-Public Use
  Company Number: US-GLAXOSMITHKLINE-A0542273A

PATIENT
  Age: 52 Year
  Sex: Female

DRUGS (4)
  1. PAXIL [Suspect]
     Indication: DRUG USE FOR UNKNOWN INDICATION
     Route: 048
  2. STEROIDS [Suspect]
     Route: 065
  3. PAIN MEDICATION [Suspect]
     Route: 065
  4. ANESTHESIA [Suspect]
     Route: 065

REACTIONS (14)
  - ABNORMAL DREAMS [None]
  - ANXIETY [None]
  - CONFUSIONAL STATE [None]
  - DRUG INEFFECTIVE [None]
  - DRUG INTERACTION [None]
  - DRUG WITHDRAWAL SYNDROME [None]
  - HEADACHE [None]
  - INFLUENZA [None]
  - INFLUENZA LIKE ILLNESS [None]
  - PARAESTHESIA [None]
  - PARANOIA [None]
  - SENSORY DISTURBANCE [None]
  - SUICIDAL IDEATION [None]
  - TREMOR [None]
